FAERS Safety Report 9408458 (Version 1)
Quarter: 2013Q3

REPORT INFORMATION
  Report Type: Spontaneous
  Country: US (occurrence: None)
  Receive Date: 20130716
  Receipt Date: 20130716
  Transmission Date: 20140515
  Serious: Yes (Hospitalization)
  Sender: FDA-Public Use
  Company Number: AUR-APL-2013-05833

PATIENT
  Age: 57 Year
  Sex: Female

DRUGS (1)
  1. ALENDRONIC ACID [Suspect]
     Indication: OSTEOPOROSIS
     Dosage: (70MG, 1 IN 1 WK) ORAL
     Route: 048

REACTIONS (7)
  - Dysphonia [None]
  - Dyspnoea [None]
  - Productive cough [None]
  - Respiratory distress [None]
  - Atelectasis [None]
  - Tracheal obstruction [None]
  - Dysphagia [None]
